FAERS Safety Report 4835858-5 (Version None)
Quarter: 2005Q4

REPORT INFORMATION
  Report Type: 
  Country: None (occurrence: None)
  Receive Date: 20051118
  Receipt Date: 20051109
  Transmission Date: 20060501
  Serious: Yes (Disabling, Other)
  Sender: FDA-Public Use
  Company Number: 2005131304

PATIENT
  Age: 66 Year
  Sex: Female
  Weight: 66.6788 kg

DRUGS (12)
  1. BEXTRA [Suspect]
     Indication: RHEUMATOID ARTHRITIS
     Dosage: 10 MG (10 MG, 1 IN 1 D), ORAL
     Route: 048
     Dates: start: 20020501
  2. CELEBREX [Suspect]
     Indication: RHEUMATOID ARTHRITIS
     Dosage: 200 MG (200 MG, 1 IN 1 D), ORAL
     Route: 048
     Dates: start: 20050401
  3. PREVACID [Concomitant]
  4. METHOTREXATE [Concomitant]
  5. HYDROXYCHLOROQUINE (HYDROXYCHLOROQUINE) [Concomitant]
  6. FOLIC ACID [Concomitant]
  7. NORVASC [Concomitant]
  8. VIVELLE [Concomitant]
  9. DARVOCET [Concomitant]
  10. CALCIUM (CALCIUM) [Concomitant]
  11. VITAMIN D [Concomitant]
  12. PLAQUENIL [Concomitant]

REACTIONS (9)
  - BLINDNESS UNILATERAL [None]
  - CATARACT [None]
  - DISEASE PROGRESSION [None]
  - DRUG INEFFECTIVE [None]
  - OCULAR VASCULAR DISORDER [None]
  - RHEUMATOID ARTHRITIS [None]
  - TENDON RUPTURE [None]
  - VASCULAR OCCLUSION [None]
  - WEIGHT DECREASED [None]
